FAERS Safety Report 7565883-5 (Version None)
Quarter: 2011Q2

REPORT INFORMATION
  Report Type: 
  Country: None (occurrence: None)
  Receive Date: 20110623
  Receipt Date: 20110616
  Transmission Date: 20111010
  Serious: Yes (Other)
  Sender: FDA-Public Use
  Company Number: US-PFIZER INC-2010006453

PATIENT
  Sex: Male

DRUGS (3)
  1. XANAX [Concomitant]
     Dosage: UNK
     Dates: start: 20040101
  2. CHANTIX [Suspect]
     Indication: SMOKING CESSATION THERAPY
     Dosage: UNK
     Dates: start: 20071101
  3. DEPAKOTE [Concomitant]
     Dosage: UNK
     Dates: start: 20060101

REACTIONS (5)
  - DRUG INEFFECTIVE [None]
  - NAUSEA [None]
  - DEPRESSION [None]
  - SUICIDE ATTEMPT [None]
  - VOMITING [None]
